FAERS Safety Report 6946044-7 (Version None)
Quarter: 2010Q3

REPORT INFORMATION
  Report Type: 
  Country: None (occurrence: None)
  Receive Date: 20100827
  Receipt Date: 20091229
  Transmission Date: 20110219
  Serious: No
  Sender: FDA-Public Use
  Company Number: A0836862A

PATIENT
  Age: 20 Year
  Sex: Female

DRUGS (2)
  1. ACYCLOVIR SODIUM [Suspect]
     Indication: GENITAL HERPES
     Dosage: 2TAB PER DAY
     Route: 048
     Dates: start: 20091201, end: 20091201
  2. NO CONCURRENT MEDICATION [Concomitant]

REACTIONS (1)
  - DRUG INEFFECTIVE [None]
